FAERS Safety Report 8345678-5 (Version None)
Quarter: 2012Q2

REPORT INFORMATION
  Report Type: 
  Country: None (occurrence: None)
  Receive Date: 20120508
  Receipt Date: 20120427
  Transmission Date: 20120825
  Serious: Yes (Other)
  Sender: FDA-Public Use
  Company Number: US-ELI_LILLY_AND_COMPANY-US201205001068

PATIENT
  Age: 74 Year
  Sex: Female

DRUGS (1)
  1. ADCIRCA [Suspect]

REACTIONS (1)
  - DYSPNOEA [None]
